FAERS Safety Report 9768915 (Version 1)
Quarter: 2013Q4

REPORT INFORMATION
  Report Type: Spontaneous
  Country: GB (occurrence: None)
  Receive Date: 20131216
  Receipt Date: 20131216
  Transmission Date: 20140711
  Serious: Yes (Life-Threatening, Hospitalization, Disabling, Other)
  Sender: FDA-Public Use
  Company Number: AUR-APL-2013-10326

PATIENT
  Age: 27 Year
  Sex: Female

DRUGS (12)
  1. QUETIAPINE [Suspect]
     Indication: PSYCHIATRIC SYMPTOM
     Dosage: 1 IN 1 D
     Route: 048
  2. CYCLIZINE (CYCLIZINE) [Concomitant]
  3. FUROSEMIDE (FUROSEMIDE) [Concomitant]
  4. HYDROXYZINE (HYDROXYZINE) [Suspect]
  5. LORATIDINE [Concomitant]
  6. MEBERVERINE (MEBERVERINE) [Concomitant]
  7. OMEPRAZOLE (OMEPRAZOLE) [Suspect]
  8. RAMIPRIL (RAMIPRIL) [Concomitant]
  9. SANDO-K (POTASSIUM CHLORIDE) [Concomitant]
  10. SENNA (SENNA ALEXANDRINA) [Concomitant]
  11. SPIRONOLACTONE (SPIRONOLACTONE) [Concomitant]
  12. WARFARIN (WARFARIN) [Concomitant]

REACTIONS (1)
  - Cardiac failure [None]
